FAERS Safety Report 8183376-1 (Version None)
Quarter: 2012Q1

REPORT INFORMATION
  Report Type: 
  Country: None (occurrence: None)
  Receive Date: 20120130
  Receipt Date: 20111114
  Transmission Date: 20120608
  Serious: Yes (Other)
  Sender: FDA-Public Use
  Company Number: 045680

PATIENT
  Age: 39 Year
  Sex: Male

DRUGS (2)
  1. KEPPRA [Suspect]
     Indication: CONVULSION
     Dosage: (1000 MG, TOTAL DAILY DOSE: 1000 MG ORAL)
     Route: 048
     Dates: start: 20050915, end: 20060116
  2. TEGRETOL [Concomitant]

REACTIONS (3)
  - INSOMNIA [None]
  - EMOTIONAL DISTRESS [None]
  - UVEITIS [None]
